FAERS Safety Report 4503133-4 (Version None)
Quarter: 2004Q4

REPORT INFORMATION
  Report Type: 
  Country: None (occurrence: None)
  Receive Date: 20041117
  Receipt Date: 20031104
  Transmission Date: 20050328
  Serious: No
  Sender: FDA-Public Use
  Company Number: US-BRISTOL-MYERS SQUIBB COMPANY-12426888

PATIENT
  Sex: Male

DRUGS (1)
  1. VEPESID [Suspect]
     Indication: TESTIS CANCER

REACTIONS (1)
  - HYPERSENSITIVITY [None]
